FAERS Safety Report 10360011 (Version 1)
Quarter: 2014Q3

REPORT INFORMATION
  Report Type: Spontaneous
  Country: US (occurrence: None)
  Receive Date: 20140731
  Receipt Date: 20140731
  Transmission Date: 20150326
  Serious: Yes (Other)
  Sender: FDA-Public Use
  Company Number: None

PATIENT
  Age: 96 Year
  Sex: Male

DRUGS (1)
  1. ZYTIGA [Suspect]
     Active Substance: ABIRATERONE ACETATE
     Indication: PROSTATE CANCER
     Dosage: 4 TABLETS (1000 MG) DAILY ORAL/ON EMPTY STOMACH
     Route: 048
     Dates: start: 20140605, end: 20140725

REACTIONS (3)
  - Memory impairment [None]
  - Condition aggravated [None]
  - Confusional state [None]

NARRATIVE: CASE EVENT DATE: 20140725
